FAERS Safety Report 21720637 (Version 1)
Quarter: 2022Q4

REPORT INFORMATION
  Report Type: Spontaneous
  Country: US (occurrence: US)
  Receive Date: 20221213
  Receipt Date: 20221213
  Transmission Date: 20230113
  Serious: No
  Sender: FDA-Public Use
  Company Number: US-STRIDES ARCOLAB LIMITED-2022SP014478

PATIENT
  Age: 20 Year
  Sex: Female

DRUGS (3)
  1. PREDNISOLONE [Suspect]
     Active Substance: PREDNISOLONE
     Indication: Immune thrombocytopenia
     Dosage: 1 MILLIGRAM/KILOGRAM
     Route: 065
  2. DEXAMETHASONE [Suspect]
     Active Substance: DEXAMETHASONE
     Indication: Immune thrombocytopenia
     Dosage: 40 MILLIGRAM PER DAY
     Route: 065
  3. IRON [Concomitant]
     Active Substance: IRON
     Indication: Mineral supplementation
     Dosage: UNK
     Route: 065

REACTIONS (4)
  - Condition aggravated [Unknown]
  - Behaviour disorder [Unknown]
  - Abdominal pain [Unknown]
  - Insomnia [Unknown]
